FAERS Safety Report 10685386 (Version 1)
Quarter: 2014Q4

REPORT INFORMATION
  Report Type: Spontaneous
  Country: US (occurrence: None)
  Receive Date: 20141229
  Receipt Date: 20141229
  Transmission Date: 20150529
  Serious: Yes (Other)
  Sender: FDA-Public Use
  Company Number: ADR-2014-02439

PATIENT
  Age: 68 Year
  Sex: Male

DRUGS (1)
  1. BACLOFEN. [Suspect]
     Active Substance: BACLOFEN
     Indication: MUSCLE SPASTICITY

REACTIONS (6)
  - Device breakage [None]
  - Spinal cord compression [None]
  - Device related infection [None]
  - Muscle spasticity [None]
  - Abdominal pain [None]
  - Wheelchair user [None]

NARRATIVE: CASE EVENT DATE: 20141018
